FAERS Safety Report 26171252 (Version 1)
Quarter: 2025Q4

REPORT INFORMATION
  Report Type: Report from Study
  Country: CO (occurrence: CO)
  Receive Date: 20251217
  Receipt Date: 20251217
  Transmission Date: 20260117
  Serious: Yes (Other)
  Sender: ABBVIE
  Company Number: CO-ABBVIE-6592462

PATIENT
  Age: 64 Year
  Sex: Female
  Weight: 86 kg

DRUGS (1)
  1. RINVOQ [Suspect]
     Active Substance: UPADACITINIB
     Indication: Rheumatoid arthritis
     Dosage: FORM STRENGTH: RINVOQ BOTTLE 15 MG
     Route: 048
     Dates: start: 20231030, end: 20251129

REACTIONS (5)
  - Patella replacement [Not Recovered/Not Resolved]
  - Road traffic accident [Unknown]
  - Arthralgia [Unknown]
  - Gait disturbance [Not Recovered/Not Resolved]
  - Procedural pain [Not Recovered/Not Resolved]

NARRATIVE: CASE EVENT DATE: 20240101
